FAERS Safety Report 15254583 (Version 1)
Quarter: 2018Q3

REPORT INFORMATION
  Report Type: Spontaneous
  Country: US (occurrence: US)
  Receive Date: 20180717
  Receipt Date: 20180717
  Transmission Date: 20181010
  Serious: No
  Sender: FDA-Public Use
  Company Number: None

PATIENT
  Age: 55 Year
  Sex: Female
  Weight: 63 kg

DRUGS (16)
  1. GLUTATHIONE [Concomitant]
     Active Substance: GLUTATHIONE
  2. BILBERRY [Concomitant]
     Active Substance: BILBERRY
  3. MSM [Concomitant]
     Active Substance: DIMETHYL SULFONE
  4. BONE STRENGTH [Concomitant]
  5. ULTRA JOINT [Concomitant]
  6. LUTEIN [Concomitant]
     Active Substance: LUTEIN
  7. SUPHEDRINE [Concomitant]
     Active Substance: PSEUDOEPHEDRINE HYDROCHLORIDE
  8. ESTER C [Concomitant]
  9. ELDERBERRY [Concomitant]
     Active Substance: HERBALS
  10. XIIDRA [Suspect]
     Active Substance: LIFITEGRAST
     Indication: DRY EYE
     Dosage: ?          QUANTITY:1 DROP(S);?
     Route: 047
     Dates: start: 20180316, end: 20180605
  11. FLAXSEED [Concomitant]
     Active Substance: FLAX SEED
  12. PLEXUS X FACTOR AND BIO CLEANSE [Concomitant]
  13. ORENCIA [Concomitant]
     Active Substance: ABATACEPT
  14. IBUPROFEN. [Concomitant]
     Active Substance: IBUPROFEN
  15. CHLOR KON [Concomitant]
  16. BONE BROTH PROTEIN [Concomitant]

REACTIONS (2)
  - Arthralgia [None]
  - Movement disorder [None]

NARRATIVE: CASE EVENT DATE: 20180605
